FAERS Safety Report 6727754-3 (Version None)
Quarter: 2010Q2

REPORT INFORMATION
  Report Type: 
  Country: None (occurrence: None)
  Receive Date: 20100517
  Receipt Date: 20100510
  Transmission Date: 20101027
  Serious: Yes (Congenital Anomaly)
  Sender: FDA-Public Use
  Company Number: IE-ASTRAZENECA-2010SE11012

PATIENT
  Age: 0 Week
  Sex: Female
  Weight: 4.2 kg

DRUGS (9)
  1. QUETIAPINE [Suspect]
     Indication: AFFECTIVE DISORDER
     Route: 064
  2. QUETIAPINE [Suspect]
     Route: 064
  3. ESCITALOPRAM [Suspect]
     Indication: AFFECTIVE DISORDER
     Route: 064
  4. AMOXIL [Suspect]
     Indication: RESPIRATORY TRACT INFECTION
     Route: 064
  5. AUGMENTIN '125' [Suspect]
     Indication: URINARY TRACT INFECTION
     Route: 064
  6. RANITIDINE [Suspect]
     Indication: DYSPEPSIA
     Route: 064
  7. CYTAMEN [Suspect]
     Route: 064
  8. LEXAPRO [Concomitant]
     Route: 064
  9. ANTIBIOTICS [Concomitant]
     Route: 064

REACTIONS (4)
  - HYPERTONIA NEONATAL [None]
  - HYPOTONIA [None]
  - POOR SUCKING REFLEX [None]
  - TALIPES [None]
